FAERS Safety Report 12486718 (Version 2)
Quarter: 2016Q3

REPORT INFORMATION
  Report Type: Report from Study
  Country: US (occurrence: US)
  Receive Date: 20160621
  Receipt Date: 20160809
  Transmission Date: 20161109
  Serious: Yes (Other)
  Sender: FDA-Public Use
  Company Number: GXBR2016US001825

PATIENT
  Age: 20 Year
  Sex: Female

DRUGS (1)
  1. GLATOPA [Suspect]
     Active Substance: GLATIRAMER ACETATE
     Indication: MULTIPLE SCLEROSIS
     Dosage: 20 MG, QD
     Route: 065
     Dates: start: 20160508

REACTIONS (8)
  - Chest pain [Recovered/Resolved]
  - Injection site erythema [Not Recovered/Not Resolved]
  - Immediate post-injection reaction [Recovered/Resolved]
  - Injection site pain [Not Recovered/Not Resolved]
  - Dysstasia [Recovered/Resolved]
  - Dyspnoea [Recovered/Resolved]
  - Vomiting [Recovered/Resolved]
  - Swelling face [Not Recovered/Not Resolved]

NARRATIVE: CASE EVENT DATE: 20160508
